FAERS Safety Report 15560721 (Version 1)
Quarter: 2018Q4

REPORT INFORMATION
  Report Type: Spontaneous
  Country: US (occurrence: US)
  Receive Date: 20181024
  Receipt Date: 20181024
  Transmission Date: 20190205
  Serious: No
  Sender: FDA-Public Use
  Company Number: None

PATIENT
  Age: 43 Year
  Sex: Female

DRUGS (2)
  1. MYCOPHENOLATE MOFETIL CAP [Suspect]
     Active Substance: MYCOPHENOLATE MOFETIL
  2. TACROLIMUS CAP [Suspect]
     Active Substance: TACROLIMUS
     Dates: start: 201809

REACTIONS (1)
  - Pain in extremity [None]

NARRATIVE: CASE EVENT DATE: 20181022
